FAERS Safety Report 9337661 (Version 2)
Quarter: 2013Q4

REPORT INFORMATION
  Report Type: Report from Study
  Country: JP (occurrence: JP)
  Receive Date: 20130607
  Receipt Date: 20131001
  Transmission Date: 20140711
  Serious: Yes (Hospitalization)
  Sender: FDA-Public Use
  Company Number: JP-EISAI INC-E2020-12430-SOL-JP

PATIENT
  Age: 86 Year
  Sex: Female

DRUGS (12)
  1. ARICEPT [Suspect]
     Indication: DEMENTIA ALZHEIMER^S TYPE
     Route: 048
     Dates: start: 20110404, end: 20110410
  2. ARICEPT [Suspect]
     Route: 048
     Dates: start: 20110411, end: 20111226
  3. ARICEPT [Suspect]
     Route: 048
     Dates: start: 20111227, end: 20121112
  4. ARICEPT [Suspect]
     Route: 048
     Dates: start: 20121120
  5. ONON [Concomitant]
     Route: 048
     Dates: start: 20091222
  6. THEODUR [Concomitant]
     Route: 048
     Dates: start: 20091222
  7. PURSENNID [Concomitant]
     Route: 048
     Dates: start: 20100308
  8. MYSLEE [Concomitant]
     Route: 048
     Dates: start: 20110526
  9. BUP-4 [Concomitant]
     Route: 048
     Dates: start: 20110526
  10. BAYASPIRIN [Concomitant]
     Route: 048
     Dates: start: 20111125
  11. TAKEPRON [Concomitant]
     Route: 048
     Dates: start: 20111130
  12. MAGMITT [Concomitant]
     Route: 048
     Dates: start: 20120807

REACTIONS (2)
  - Pneumonia aspiration [Recovered/Resolved]
  - Subileus [Recovered/Resolved]
